FAERS Safety Report 13324773 (Version 3)
Quarter: 2017Q2

REPORT INFORMATION
  Report Type: Spontaneous
  Country: US (occurrence: US)
  Receive Date: 20170310
  Receipt Date: 20170623
  Transmission Date: 20170830
  Serious: Yes (Death, Hospitalization)
  Sender: FDA-Public Use
  Company Number: US-TAIHO ONCOLOGY INC-EU-2017-00234

PATIENT
  Age: 64 Year
  Sex: Female

DRUGS (1)
  1. LONSURF [Suspect]
     Active Substance: TIPIRACIL HYDROCHLORIDE\TRIFLURIDINE
     Indication: MALAISE
     Route: 048
     Dates: start: 20161101

REACTIONS (5)
  - Hospitalisation [Unknown]
  - Asthenia [Unknown]
  - Urinary tract infection [Unknown]
  - Dehydration [Unknown]
  - Disease progression [Fatal]

NARRATIVE: CASE EVENT DATE: 20161231
